FAERS Safety Report 8948151 (Version 1)
Quarter: 2012Q4

REPORT INFORMATION
  Report Type: 
  Country: US (occurrence: US)
  Receive Date: 20121204
  Receipt Date: 20121204
  Transmission Date: 20130627
  Serious: Yes (Other)
  Sender: FDA-Public Use
  Company Number: US-PFIZER INC-2012302002

PATIENT
  Sex: Female
  Weight: 113 kg

DRUGS (2)
  1. CHANTIX [Suspect]
     Indication: SMOKING CESSATION THERAPY
     Dosage: UNK
     Dates: start: 2005
  2. METOPROLOL [Concomitant]
     Indication: BLOOD PRESSURE ABNORMAL
     Dosage: 100 mg, daily

REACTIONS (6)
  - Hallucination [Unknown]
  - Mood swings [Unknown]
  - Nightmare [Not Recovered/Not Resolved]
  - Depression [Unknown]
  - Stress [Unknown]
  - Nausea [Recovered/Resolved]
